FAERS Safety Report 4382176-8 (Version None)
Quarter: 2004Q2

REPORT INFORMATION
  Report Type: 
  Country: None (occurrence: None)
  Receive Date: 20040615
  Receipt Date: 20040602
  Transmission Date: 20050107
  Serious: Yes (Other)
  Sender: FDA-Public Use
  Company Number: 2003034529

PATIENT
  Sex: Female
  Weight: 81.6475 kg

DRUGS (7)
  1. DILANTIN [Suspect]
     Indication: CONVULSION
     Dosage: 400 MG (BID), ORAL
     Route: 048
  2. RANITIDINE HYDROCHLORIDE [Suspect]
     Indication: GASTROOESOPHAGEAL REFLUX DISEASE
     Dosage: 600 MG BID, ORAL
     Route: 048
  3. PRIMIDONE [Suspect]
     Indication: CONVULSION
     Dosage: 750 MG TID, ORAL
     Route: 048
  4. ARTHROTEC [Concomitant]
  5. CONJUGATED ESTROGENS [Concomitant]
  6. ALLEGRA-D (FEXOFENADINE, PSEUDOEPHEDRINE HYDROCHLORIDE) [Concomitant]
  7. FLUTICASONE PROPIONATE [Concomitant]

REACTIONS (20)
  - ARTHRITIS [None]
  - BARRETT'S OESOPHAGUS [None]
  - BREAST CANCER [None]
  - CONVULSION [None]
  - DIARRHOEA [None]
  - DIZZINESS [None]
  - DRUG INEFFECTIVE [None]
  - FEELING HOT [None]
  - FOOT FRACTURE [None]
  - FRACTURE [None]
  - GASTROOESOPHAGEAL REFLUX DISEASE [None]
  - GLOSSODYNIA [None]
  - HOT FLUSH [None]
  - IMPAIRED HEALING [None]
  - JOINT SPRAIN [None]
  - NEUROPATHY [None]
  - PAIN [None]
  - TENDON RUPTURE [None]
  - TREATMENT NONCOMPLIANCE [None]
  - VOMITING [None]
